FAERS Safety Report 5490700-7 (Version None)
Quarter: 2007Q4

REPORT INFORMATION
  Report Type: 
  Country: None (occurrence: None)
  Receive Date: 20071019
  Receipt Date: 20071011
  Transmission Date: 20080405
  Serious: Yes (Hospitalization)
  Sender: FDA-Public Use
  Company Number: US-ELI_LILLY_AND_COMPANY-US200707005256

PATIENT
  Sex: Female
  Weight: 104.31 kg

DRUGS (1)
  1. OLANZAPINE [Suspect]
     Dates: start: 20021015, end: 20030429

REACTIONS (4)
  - CHOLELITHIASIS [None]
  - GALLBLADDER OPERATION [None]
  - TYPE 2 DIABETES MELLITUS [None]
  - WEIGHT INCREASED [None]
